FAERS Safety Report 7237086-5 (Version None)
Quarter: 2011Q1

REPORT INFORMATION
  Report Type: 
  Country: None (occurrence: None)
  Receive Date: 20110121
  Receipt Date: 20110113
  Transmission Date: 20110831
  Serious: Yes (Death)
  Sender: FDA-Public Use
  Company Number: JP-GENZYME-THYM-1002009

PATIENT
  Sex: Male
  Weight: 80 kg

DRUGS (30)
  1. FILGRASTIM [Concomitant]
     Indication: APLASTIC ANAEMIA
     Dosage: 300 MCG, QD
     Dates: start: 20100927, end: 20101023
  2. CEFEPIME HYDROCHLORIDE [Concomitant]
     Indication: FEBRILE NEUTROPENIA
     Dosage: UNK
     Dates: start: 20100923, end: 20101008
  3. ITRACONAZOLE [Concomitant]
     Indication: INFECTION PROPHYLAXIS
     Dosage: UNK
     Dates: start: 20101001, end: 20101024
  4. MICAFUNGIN SODIUM [Concomitant]
     Indication: PYREXIA
     Dosage: UNK
     Dates: start: 20101023, end: 20101025
  5. DOPAMINE HYDROCHLORIDE [Concomitant]
     Indication: SHOCK
     Dosage: UNK
     Dates: start: 20101025, end: 20101026
  6. ATROPINE SULFATE [Concomitant]
     Indication: SHOCK
     Dosage: UNK
     Dates: start: 20101025, end: 20101025
  7. RED BLOOD CELLS, CONCENTRATED [Concomitant]
     Indication: APLASTIC ANAEMIA
     Dosage: UNK
     Dates: start: 20100929, end: 20101026
  8. URSODIOL [Concomitant]
     Indication: HEPATITIS ACUTE
     Dosage: UNK
     Dates: start: 20100916
  9. PREDNISOLONE [Concomitant]
     Indication: APLASTIC ANAEMIA
     Dosage: UNK
     Dates: start: 20101002, end: 20101022
  10. VALACICLOVIR [Concomitant]
     Indication: INFECTION PROPHYLAXIS
     Dosage: UNK
     Dates: start: 20101001, end: 20101024
  11. DOPAMINE HYDROCHLORIDE [Concomitant]
     Dosage: UNK
     Dates: start: 20101025, end: 20101026
  12. FUROSEMIDE [Concomitant]
     Indication: WEIGHT INCREASED
     Dosage: UNK
     Dates: start: 20100929, end: 20101001
  13. VANCOMYCIN HCL [Concomitant]
     Indication: PYREXIA
     Dosage: UNK
     Dates: start: 20101024, end: 20101026
  14. CALCIUM GLUCONATE [Concomitant]
     Indication: BLOOD CALCIUM DECREASED
     Dosage: UNK
     Dates: start: 20101025, end: 20101025
  15. CYCLOSPORINE [Concomitant]
     Indication: APLASTIC ANAEMIA
     Dosage: 120 MG, BID
     Dates: start: 20100927, end: 20101024
  16. DIPHENHYDRAMINE HYDROCHLORIDE [Concomitant]
     Indication: PREMEDICATION
     Dosage: UNK
     Dates: start: 20100927, end: 20101001
  17. AMPHOTERICIN B [Concomitant]
     Indication: PYREXIA
     Dosage: UNK
     Dates: start: 20101024, end: 20101026
  18. THYMOGLOBULIN [Suspect]
     Indication: APLASTIC ANAEMIA
     Dosage: 260 MG, QD
     Route: 042
     Dates: start: 20100927, end: 20101001
  19. METHYLPREDNISOLONE SODIUM SUCCINATE [Concomitant]
     Indication: PRODUCT USED FOR UNKNOWN INDICATION
     Dosage: UNK
     Dates: start: 20100927, end: 20101026
  20. ACETAMINOPHEN [Concomitant]
     Indication: PREMEDICATION
     Dosage: UNK
     Dates: start: 20100927, end: 20101001
  21. GLYCYRRHIZIN-GLYCINE-CYSTEIN COMBINED DRUG [Concomitant]
     Indication: HEPATITIS ACUTE
     Dosage: UNK
     Dates: start: 20100916, end: 20101026
  22. MEROPENEM [Concomitant]
     Indication: PYREXIA
     Dosage: UNK
     Dates: start: 20101024, end: 20101026
  23. OMEPRAZOLE [Concomitant]
     Indication: PROPHYLAXIS AGAINST GASTROINTESTINAL ULCER
     Dosage: UNK
     Dates: start: 20101025, end: 20101026
  24. LIVER EXTRACT [Concomitant]
     Indication: HEPATITIS ACUTE
     Dosage: UNK
     Dates: start: 20100916, end: 20101026
  25. FLAVINE ADENINE DINUCLEOTIDE [Concomitant]
     Indication: HEPATITIS ACUTE
     Dosage: UNK
     Dates: start: 20100916, end: 20101026
  26. SULFAMETHOXAZOLE AND TRIMETHOPRIM [Concomitant]
     Indication: INFECTION PROPHYLAXIS
     Dosage: UNK
     Dates: start: 20101015, end: 20101021
  27. EPINEPHRINE [Concomitant]
     Indication: SHOCK
     Dosage: UNK
     Dates: start: 20101025, end: 20101025
  28. METHYLPREDNISOLONE SODIUM SUCCINATE [Concomitant]
     Indication: APLASTIC ANAEMIA
     Dosage: UNK
     Dates: start: 20100927, end: 20101001
  29. PROPOFOL [Concomitant]
     Indication: SHOCK
     Dosage: UNK
     Dates: start: 20101025, end: 20101026
  30. PLATELETS, CONCENTRATED [Concomitant]
     Indication: APLASTIC ANAEMIA
     Dosage: UNK
     Dates: start: 20100914, end: 20101026

REACTIONS (2)
  - LYMPHOPROLIFERATIVE DISORDER [None]
  - MULTI-ORGAN FAILURE [None]
